FAERS Safety Report 4505974-6 (Version None)
Quarter: 2004Q4

REPORT INFORMATION
  Report Type: 
  Country: None (occurrence: None)
  Receive Date: 20041025
  Receipt Date: 20031112
  Transmission Date: 20050328
  Serious: Yes (Other)
  Sender: FDA-Public Use
  Company Number: US-JNJFOC-20031001127

PATIENT
  Age: 65 Year
  Sex: Female
  Weight: 74.8435 kg

DRUGS (5)
  1. REMICADE [Suspect]
     Indication: CROHN'S DISEASE
     Dates: start: 20030417
  2. REMICADE [Suspect]
     Dates: start: 20030612
  3. VIOXX [Concomitant]
  4. PRAVACHOL [Concomitant]
  5. PENTASA [Concomitant]

REACTIONS (1)
  - BLOOD PRESSURE DECREASED [None]
